FAERS Safety Report 7914550-4 (Version None)
Quarter: 2011Q4

REPORT INFORMATION
  Report Type: 
  Country: None (occurrence: None)
  Receive Date: 20111115
  Receipt Date: 20111031
  Transmission Date: 20120403
  Serious: Yes (Other)
  Sender: FDA-Public Use
  Company Number: PHHY2011GB10549

PATIENT
  Sex: Female

DRUGS (6)
  1. HYDROCORTISONE [Concomitant]
     Indication: BLOOD CORTISOL DECREASED
     Dosage: 10 MG, BID
     Route: 048
  2. ALFACALCIDOL [Concomitant]
     Indication: BLOOD CALCIUM DECREASED
     Dosage: 0.5 UG, BID
     Route: 048
     Dates: start: 20050101
  3. PARLODEL [Suspect]
     Indication: PROLACTINOMA
     Dosage: 10 MG, BID
     Route: 048
  4. CALCIUM [Concomitant]
     Indication: BLOOD CALCIUM DECREASED
     Dosage: 1.25 MG, BID
     Route: 048
     Dates: start: 20050101
  5. FLUOXETINE HCL [Concomitant]
     Indication: DEPRESSION
     Dosage: 20 MG, BID
     Route: 048
     Dates: start: 20110101
  6. LEVOTHYROXINE SODIUM [Concomitant]
     Indication: HYPOTHYROIDISM
     Dosage: 100 UG,
     Route: 048
     Dates: start: 19960101

REACTIONS (5)
  - ANGER [None]
  - DEPRESSION [None]
  - IMPULSIVE BEHAVIOUR [None]
  - SUICIDAL IDEATION [None]
  - PATHOLOGICAL GAMBLING [None]
